FAERS Safety Report 7577165-6 (Version None)
Quarter: 2011Q2

REPORT INFORMATION
  Report Type: 
  Country: None (occurrence: None)
  Receive Date: 20110621
  Receipt Date: 20110606
  Transmission Date: 20111010
  Serious: Yes (Other)
  Sender: FDA-Public Use
  Company Number: 2011P1007000

PATIENT
  Age: 67 Year
  Sex: Female
  Weight: 66.6788 kg

DRUGS (13)
  1. KAYLOIC [Concomitant]
  2. FOSAMAX [Concomitant]
  3. CLORAZEPATE DIPOTASSIUM [Concomitant]
  4. KEPPRA [Concomitant]
  5. CALCIUM CARBONATE [Concomitant]
  6. VITAMIN E [Concomitant]
  7. PAROXETINE HCL [Concomitant]
  8. RANITIDINE [Concomitant]
  9. MULTI-VITAMIN [Concomitant]
  10. WARFARIN SODIUM [Suspect]
     Indication: COAGULOPATHY
     Dosage: 5 MG; QD; PO
     Route: 048
     Dates: start: 20110526, end: 20110531
  11. ASPIRIN [Concomitant]
  12. GLUCOSAMIDE CHONDROITIN [Concomitant]
  13. IBUPROFEN [Concomitant]

REACTIONS (2)
  - TONGUE HAEMORRHAGE [None]
  - INTERNATIONAL NORMALISED RATIO INCREASED [None]
